FAERS Safety Report 23494595 (Version 2)
Quarter: 2024Q2

REPORT INFORMATION
  Report Type: Spontaneous
  Country: US (occurrence: US)
  Receive Date: 20240207
  Receipt Date: 20240508
  Transmission Date: 20240716
  Serious: No
  Sender: FDA-Public Use
  Company Number: US-LUNDBECK-DKLU3072251

PATIENT
  Age: 69 Year
  Sex: Female
  Weight: 77.11 kg

DRUGS (1)
  1. VYEPTI [Suspect]
     Active Substance: EPTINEZUMAB-JJMR
     Indication: Migraine
     Route: 041
     Dates: start: 20221213

REACTIONS (6)
  - Dyspnoea [Unknown]
  - Chest discomfort [Unknown]
  - Cough [Unknown]
  - Flushing [Unknown]
  - Hypertension [Unknown]
  - Chest pain [Unknown]

NARRATIVE: CASE EVENT DATE: 20221213
